FAERS Safety Report 16750647 (Version 2)
Quarter: 2019Q4

REPORT INFORMATION
  Report Type: Spontaneous
  Country: FR (occurrence: FR)
  Receive Date: 20190828
  Receipt Date: 20191004
  Transmission Date: 20200122
  Serious: No
  Sender: FDA-Public Use
  Company Number: FR-ELI_LILLY_AND_COMPANY-FR201908011511

PATIENT
  Age: 40 Year
  Sex: Female

DRUGS (8)
  1. ZYPREXA [Suspect]
     Active Substance: OLANZAPINE
     Indication: PSYCHOTIC DISORDER
  2. TEMESTA [LORAZEPAM] [Concomitant]
     Active Substance: LORAZEPAM
     Indication: PSYCHOTIC DISORDER
  3. ZYPREXA [Suspect]
     Active Substance: OLANZAPINE
     Indication: PARANOIA
     Dosage: 5 MG, DAILY
     Route: 048
     Dates: start: 20190717, end: 20190812
  4. DULOXETINE. [Concomitant]
     Active Substance: DULOXETINE
     Indication: PSYCHOTIC DISORDER
  5. TEMESTA [LORAZEPAM] [Concomitant]
     Active Substance: LORAZEPAM
     Indication: PARANOIA
     Dosage: 4 MG, DAILY
     Dates: start: 201901
  6. ABILIFY [Concomitant]
     Active Substance: ARIPIPRAZOLE
     Indication: PARANOIA
     Dosage: UNK
     Dates: start: 201901, end: 20190717
  7. ABILIFY [Concomitant]
     Active Substance: ARIPIPRAZOLE
     Indication: PSYCHOTIC DISORDER
  8. DULOXETINE. [Concomitant]
     Active Substance: DULOXETINE
     Indication: PARANOIA
     Dosage: 60 MG, DAILY
     Dates: start: 201901

REACTIONS (5)
  - Dyspnoea at rest [Unknown]
  - Oedema peripheral [Recovered/Resolved]
  - Oliguria [Unknown]
  - Eyelid oedema [Recovered/Resolved]
  - Eosinophilia [Unknown]

NARRATIVE: CASE EVENT DATE: 20190722
